FAERS Safety Report 16083934 (Version 5)
Quarter: 2020Q1

REPORT INFORMATION
  Report Type: Spontaneous
  Country: GB (occurrence: GB)
  Receive Date: 20190318
  Receipt Date: 20200212
  Transmission Date: 20200409
  Serious: Yes (Other)
  Sender: FDA-Public Use
  Company Number: GB-SA-2018SA112492

PATIENT
  Age: 36 Year
  Sex: Male

DRUGS (1)
  1. LEMTRADA [Suspect]
     Active Substance: ALEMTUZUMAB
     Indication: MULTIPLE SCLEROSIS
     Dosage: 12 MG
     Route: 041
     Dates: start: 201701

REACTIONS (13)
  - Hyperhidrosis [Recovering/Resolving]
  - Tooth abscess [Not Recovered/Not Resolved]
  - Malaise [Recovering/Resolving]
  - Influenza like illness [Recovering/Resolving]
  - Oropharyngeal pain [Recovering/Resolving]
  - Myalgia [Recovering/Resolving]
  - Urinary tract infection [Recovering/Resolving]
  - Pollakiuria [Recovering/Resolving]
  - Body temperature increased [Recovering/Resolving]
  - Balance disorder [Recovering/Resolving]
  - Unevaluable event [Recovering/Resolving]
  - Haemorrhage [Unknown]
  - Heart rate increased [Recovering/Resolving]

NARRATIVE: CASE EVENT DATE: 20180317
